FAERS Safety Report 11770914 (Version 1)
Quarter: 2015Q4

REPORT INFORMATION
  Report Type: Spontaneous
  Country: US (occurrence: US)
  Receive Date: 20151123
  Receipt Date: 20151123
  Transmission Date: 20160304
  Serious: No
  Sender: FDA-Public Use
  Company Number: US-JNJFOC-20150912529

PATIENT
  Sex: Female
  Weight: 77.11 kg

DRUGS (1)
  1. ORTHO-CEPT [Suspect]
     Active Substance: DESOGESTREL\ETHINYL ESTRADIOL
     Indication: POLYCYSTIC OVARIES
     Route: 048

REACTIONS (1)
  - Therapeutic response unexpected [Unknown]
